FAERS Safety Report 14323397 (Version 1)
Quarter: 2017Q4

REPORT INFORMATION
  Report Type: Report from Study
  Country: US (occurrence: US)
  Receive Date: 20171226
  Receipt Date: 20171226
  Transmission Date: 20180321
  Serious: No
  Sender: FDA-Public Use
  Company Number: PHEH2017US040876

PATIENT
  Sex: Female

DRUGS (1)
  1. ILARIS [Suspect]
     Active Substance: CANAKINUMAB
     Indication: PAEDIATRIC AUTOIMMUNE NEUROPSYCHIATRIC DISORDERS ASSOCIATED WITH STREPTOCOCCAL INFECTION
     Dosage: 150 MG, EVERY 8 WEEKS
     Route: 058

REACTIONS (6)
  - Pain [Unknown]
  - Influenza like illness [Unknown]
  - Malaise [Unknown]
  - Rash pruritic [Recovered/Resolved]
  - Drug ineffective [Unknown]
  - Product use issue [Unknown]
